FAERS Safety Report 8926352 (Version 1)
Quarter: 2012Q4

REPORT INFORMATION
  Report Type: 
  Country: US (occurrence: US)
  Receive Date: 20121127
  Receipt Date: 20121127
  Transmission Date: 20130627
  Serious: Yes (Other)
  Sender: FDA-Public Use
  Company Number: US-BAYER-2012-123485

PATIENT
  Age: 63 Year
  Sex: Female

DRUGS (1)
  1. BETASERON [Suspect]
     Indication: MS
     Dosage: 0.3 mg, QOD
     Route: 058

REACTIONS (6)
  - Injection site reaction [None]
  - Injection site mass [None]
  - Injection site atrophy [None]
  - Injection site erythema [None]
  - Injection site swelling [None]
  - Morphoea [None]
